FAERS Safety Report 13998052 (Version 1)
Quarter: 2017Q3

REPORT INFORMATION
  Report Type: Spontaneous
  Country: FR (occurrence: FR)
  Receive Date: 20170921
  Receipt Date: 20170921
  Transmission Date: 20171128
  Serious: Yes (Other)
  Sender: FDA-Public Use
  Company Number: FR-ACORDA-ACO_142070_2017

PATIENT
  Age: 50 Year
  Sex: Male

DRUGS (1)
  1. QUTENZA [Suspect]
     Active Substance: CAPSAICIN
     Indication: PROCEDURAL PAIN
     Dosage: 2 AND 1/4 PATCHES, UNKNOWN FREQUENCY
     Route: 065
     Dates: start: 20170731, end: 20170731

REACTIONS (2)
  - Erythema [Recovered/Resolved]
  - Thermal burn [Recovered/Resolved]

NARRATIVE: CASE EVENT DATE: 20170731
